FAERS Safety Report 25801453 (Version 3)
Quarter: 2025Q4

REPORT INFORMATION
  Report Type: Spontaneous
  Country: JP (occurrence: JP)
  Receive Date: 20250915
  Receipt Date: 20251126
  Transmission Date: 20260118
  Serious: Yes (Life-Threatening, Other)
  Sender: ROCHE
  Company Number: JP-CHUGAI-2025029117

PATIENT
  Age: 87 Year
  Sex: Female
  Weight: 51 kg

DRUGS (11)
  1. PIASKY [Suspect]
     Active Substance: CROVALIMAB-AKKZ
     Indication: Paroxysmal nocturnal haemoglobinuria
     Dosage: UNK
     Route: 042
     Dates: start: 20250819, end: 20250819
  2. PIASKY [Suspect]
     Active Substance: CROVALIMAB-AKKZ
     Dosage: UNK
     Route: 058
     Dates: start: 20250820, end: 20250820
  3. PIASKY [Suspect]
     Active Substance: CROVALIMAB-AKKZ
     Dosage: UNK
     Route: 058
     Dates: start: 20250826, end: 20250909
  4. METHENOLONE ACETATE [Concomitant]
     Active Substance: METHENOLONE ACETATE
     Dates: start: 20230620
  5. LANSOPRAZOLE [Concomitant]
     Active Substance: LANSOPRAZOLE
     Route: 048
     Dates: start: 20230523
  6. BENIDIPINE HYDROCHLORIDE [Concomitant]
     Active Substance: BENIDIPINE HYDROCHLORIDE
     Route: 048
     Dates: start: 20230523
  7. AMLODIPINE BESYLATE\IRBESARTAN [Concomitant]
     Active Substance: AMLODIPINE BESYLATE\IRBESARTAN
     Route: 065
     Dates: start: 20250224
  8. MAGNESIUM OXIDE [Concomitant]
     Active Substance: MAGNESIUM OXIDE
     Route: 065
     Dates: start: 20231024
  9. ROSUVASTATIN CALCIUM [Concomitant]
     Active Substance: ROSUVASTATIN CALCIUM
     Route: 048
     Dates: start: 20231121
  10. TRICHLORMETHIAZIDE [Concomitant]
     Active Substance: TRICHLORMETHIAZIDE
     Route: 065
     Dates: start: 20250513
  11. KERLONG [Concomitant]
     Active Substance: BETAXOLOL HYDROCHLORIDE
     Route: 065
     Dates: start: 20230620

REACTIONS (3)
  - Haemoglobin decreased [Unknown]
  - Pneumonia [Recovered/Resolved]
  - Cardiac failure [Recovering/Resolving]

NARRATIVE: CASE EVENT DATE: 20250907
